FAERS Safety Report 7967695-7 (Version None)
Quarter: 2011Q4

REPORT INFORMATION
  Report Type: 
  Country: None (occurrence: None)
  Receive Date: 20111209
  Receipt Date: 20111202
  Transmission Date: 20120403
  Serious: Yes (Hospitalization, Other)
  Sender: FDA-Public Use
  Company Number: IL-PFIZER INC-2011259725

PATIENT
  Age: 59 Year
  Sex: Male

DRUGS (11)
  1. CLINDAMYCIN HCL [Suspect]
     Dosage: 900 MG, UNK
     Dates: start: 20110418, end: 20110504
  2. CIPROFLAXACIN [Suspect]
     Dosage: 1000 MG, UNK
     Dates: start: 20110417
  3. BLINDED THERAPY [Suspect]
     Indication: TYPE 2 DIABETES MELLITUS
     Dosage: UNK
     Dates: start: 20101212, end: 20111004
  4. BLINDED THERAPY [Suspect]
     Dosage: UNK
     Dates: start: 20111108
  5. ASPIRIN [Concomitant]
  6. CLINDAMYCIN HCL [Suspect]
     Dosage: UNK
     Dates: start: 20110812, end: 20110830
  7. INSULIN DETEMIR [Suspect]
     Indication: TYPE 2 DIABETES MELLITUS
     Dosage: 60 IU, UNK
  8. NOVORAPID [Suspect]
     Indication: TYPE 2 DIABETES MELLITUS
     Dosage: 60 IU, UNK
  9. CLINDAMYCIN HCL [Suspect]
     Dosage: 1800 MG, UNK
     Dates: start: 20110417, end: 20110418
  10. CLINDAMYCIN HCL [Suspect]
     Dosage: UNK
     Dates: start: 20110917, end: 20111005
  11. CIPROFLAXACIN [Suspect]
     Dosage: UNK
     Dates: start: 20110815, end: 20110830

REACTIONS (2)
  - DIABETIC FOOT [None]
  - HEPATIC ENZYME INCREASED [None]
